FAERS Safety Report 11678654 (Version 1)
Quarter: 2015Q4

REPORT INFORMATION
  Report Type: Spontaneous
  Country: US (occurrence: US)
  Receive Date: 20151028
  Receipt Date: 20151028
  Transmission Date: 20160304
  Serious: No
  Sender: FDA-Public Use
  Company Number: US-IMPAX LABORATORIES, INC-2015-IPXL-00790

PATIENT
  Age: 56 Year
  Sex: Female
  Weight: 46.71 kg

DRUGS (3)
  1. RYTARY [Suspect]
     Active Substance: CARBIDOPA\LEVODOPA
     Indication: PARKINSON^S DISEASE
     Dosage: (23.75/ 95 MG), THREE TIMES DAILY
     Route: 048
     Dates: start: 20150630, end: 20150704
  2. APOKYN [Concomitant]
     Active Substance: APOMORPHINE HYDROCHLORIDE
     Indication: PARKINSON^S DISEASE
     Dosage: UNK
     Route: 065
  3. TASMAR [Concomitant]
     Active Substance: TOLCAPONE
     Indication: PARKINSON^S DISEASE
     Dosage: UNK
     Route: 065

REACTIONS (5)
  - Tremor [Recovered/Resolved]
  - Drug effect decreased [Unknown]
  - Restless legs syndrome [Recovered/Resolved]
  - Anxiety [Recovered/Resolved]
  - Pain [Recovered/Resolved]

NARRATIVE: CASE EVENT DATE: 20150702
